FAERS Safety Report 26055218 (Version 1)
Quarter: 2025Q4

REPORT INFORMATION
  Report Type: Spontaneous
  Country: GB (occurrence: None)
  Receive Date: 20251117
  Receipt Date: 20251117
  Transmission Date: 20260118
  Serious: Yes (Other)
  Sender: UCB
  Company Number: GB-UCBSA-2025071102

PATIENT
  Age: 37 Year

DRUGS (1)
  1. CERTOLIZUMAB PEGOL [Suspect]
     Active Substance: CERTOLIZUMAB PEGOL
     Indication: Axial spondyloarthritis
     Dosage: UNK

REACTIONS (8)
  - Sarcoidosis [Recovered/Resolved]
  - Idiopathic intracranial hypertension [Recovered/Resolved]
  - Paralysis [Recovered/Resolved]
  - Optic disc haemorrhage [Unknown]
  - Papilloedema [Unknown]
  - Axial spondyloarthritis [Unknown]
  - Condition aggravated [Unknown]
  - Lymphadenopathy [Unknown]
